FAERS Safety Report 7884669-5 (Version None)
Quarter: 2011Q4

REPORT INFORMATION
  Report Type: 
  Country: None (occurrence: None)
  Receive Date: 20111102
  Receipt Date: 20111026
  Transmission Date: 20120403
  Serious: Yes (Other)
  Sender: FDA-Public Use
  Company Number: DE-ABBOTT-11P-062-0852186-00

PATIENT
  Sex: Female

DRUGS (1)
  1. HUMIRA [Suspect]
     Indication: CROHN'S DISEASE
     Route: 058
     Dates: start: 20101220

REACTIONS (5)
  - CROHN'S DISEASE [None]
  - ABDOMINAL PAIN [None]
  - PAINFUL DEFAECATION [None]
  - INTESTINAL STENOSIS [None]
  - GASTROINTESTINAL INFLAMMATION [None]
